FAERS Safety Report 9149813 (Version 1)
Quarter: 2013Q1

REPORT INFORMATION
  Report Type: Spontaneous
  Country: US (occurrence: None)
  Receive Date: 20130301
  Receipt Date: 20130301
  Transmission Date: 20140127
  Serious: Yes (Hospitalization)
  Sender: FDA-Public Use
  Company Number: None

PATIENT
  Age: 63 Year
  Sex: Female
  Weight: 70.76 kg

DRUGS (13)
  1. ELETRIPTAN [Suspect]
     Indication: MIGRAINE
     Dosage: ELETRIPTAN 40MG PRN PO
     Route: 048
     Dates: start: 20130123, end: 20130123
  2. DULOXETINE [Suspect]
     Indication: DEPRESSION
     Dosage: DULOXETINE 60MG DAILY PO
     Route: 048
     Dates: start: 20110415, end: 20130228
  3. DULOXETINE [Suspect]
     Indication: ANXIETY
     Dosage: DULOXETINE 60MG DAILY PO
     Route: 048
     Dates: start: 20110415, end: 20130228
  4. DULOXETINE [Suspect]
     Indication: PAIN
     Dosage: DULOXETINE 60MG DAILY PO
     Route: 048
     Dates: start: 20110415, end: 20130228
  5. ALBUTEROL [Concomitant]
  6. AMLODIPINE [Concomitant]
  7. BUDESOMIDE [Concomitant]
  8. CLONIDINE [Concomitant]
  9. LEVOTHYROXINE [Concomitant]
  10. MELOXICAM [Concomitant]
  11. KCL [Concomitant]
  12. PROMETHAZINE [Concomitant]
  13. TIOTROPIUM [Concomitant]

REACTIONS (7)
  - Confusional state [None]
  - Ataxia [None]
  - Blood creatine phosphokinase increased [None]
  - Electrocardiogram QT prolonged [None]
  - Blood pressure increased [None]
  - Heart rate increased [None]
  - Serotonin syndrome [None]
